FAERS Safety Report 19628566 (Version 22)
Quarter: 2022Q4

REPORT INFORMATION
  Report Type: Other
  Country: CA (occurrence: None)
  Receive Date: 20210729
  Receipt Date: 20221114
  Transmission Date: 20230113
  Serious: Yes (Hospitalization, Other)
  Sender: FDA-Public Use
  Company Number: CA-ROCHE-2865919

PATIENT
  Age: 65 Year
  Sex: Male
  Weight: 76 kg

DRUGS (6)
  1. OCREVUS [Suspect]
     Active Substance: OCRELIZUMAB
     Indication: Primary progressive multiple sclerosis
     Dosage: 300 MG AT DAY 0 AND 14, THEN 600 MG EVERY 6 MONTH
     Route: 042
     Dates: start: 20181025
  2. OCREVUS [Suspect]
     Active Substance: OCRELIZUMAB
     Dosage: 300 MG AT DAY 0 AND 14, THEN 600 MG EVERY 6 MONTH
     Route: 042
  3. PFIZER-BIONTECH COVID-19 VACCINE [Concomitant]
     Active Substance: TOZINAMERAN
     Dosage: FIRST DOSE
     Dates: start: 20211023
  4. PFIZER-BIONTECH COVID-19 VACCINE [Concomitant]
     Active Substance: TOZINAMERAN
     Dosage: 2ND DOSE
     Dates: start: 20211120
  5. PREGABALIN [Concomitant]
     Active Substance: PREGABALIN
  6. TOVIAZ [Concomitant]
     Active Substance: FESOTERODINE FUMARATE

REACTIONS (12)
  - Nephrolithiasis [Unknown]
  - Urinary tract infection [Recovered/Resolved]
  - Blood pressure abnormal [Recovered/Resolved]
  - Septic shock [Recovered/Resolved]
  - Bradykinesia [Not Recovered/Not Resolved]
  - Fatigue [Unknown]
  - Kidney infection [Recovered/Resolved]
  - Constipation [Recovered/Resolved]
  - Infusion related reaction [Unknown]
  - Vein disorder [Unknown]
  - Vein collapse [Unknown]
  - Hypertension [Not Recovered/Not Resolved]

NARRATIVE: CASE EVENT DATE: 20200907
